FAERS Safety Report 14756505 (Version 1)
Quarter: 2018Q2

REPORT INFORMATION
  Report Type: Spontaneous
  Country: US (occurrence: US)
  Receive Date: 20180407
  Receipt Date: 20180407
  Transmission Date: 20180711
  Serious: Yes (Hospitalization)
  Sender: FDA-Public Use
  Company Number: None

PATIENT
  Age: 65 Year
  Sex: Female
  Weight: 99.34 kg

DRUGS (16)
  1. CETRZINE HYDROCHLORIDE [Concomitant]
  2. GUAIFENESIN. [Concomitant]
     Active Substance: GUAIFENESIN
  3. VIT A [Concomitant]
  4. ARMOUR THYROID [Concomitant]
     Active Substance: THYROID, PORCINE
  5. PROPANOLOL [Concomitant]
     Active Substance: PROPRANOLOL HYDROCHLORIDE
  6. MONTELUKAST [Concomitant]
     Active Substance: MONTELUKAST SODIUM
  7. LORATADINE. [Concomitant]
     Active Substance: LORATADINE
  8. NIACIN. [Concomitant]
     Active Substance: NIACIN
  9. CLONIDINE. [Concomitant]
     Active Substance: CLONIDINE
  10. SPIRONOLACTONE. [Concomitant]
     Active Substance: SPIRONOLACTONE
  11. CALCIUM WITH ZINC AND MAGNESIUM [Concomitant]
  12. MULTIVITAMIN [Concomitant]
     Active Substance: VITAMINS
  13. RANITIDINE. [Concomitant]
     Active Substance: RANITIDINE
  14. HYDRALAZINE INJECTIBLE [Suspect]
     Active Substance: HYDRALAZINE HYDROCHLORIDE
  15. VITAMIN D [Concomitant]
     Active Substance: CHOLECALCIFEROL
  16. VITAMIN C [Concomitant]
     Active Substance: ASCORBIC ACID

REACTIONS (3)
  - Headache [None]
  - Vomiting [None]
  - Blood pressure increased [None]

NARRATIVE: CASE EVENT DATE: 20180302
